FAERS Safety Report 8777847 (Version 1)
Quarter: 2012Q4

REPORT INFORMATION
  Report Type: 
  Country: US (occurrence: US)
  Receive Date: 20120912
  Receipt Date: 20120912
  Transmission Date: 20130627
  Serious: Yes (Other)
  Sender: FDA-Public Use
  Company Number: US-VERTEX PHARMACEUTICAL INC.-AE-2012-004435

PATIENT

DRUGS (17)
  1. INCIVEK [Suspect]
     Indication: HEPATITIS C
     Route: 048
     Dates: start: 20120317, end: 20120525
  2. PEGASYS [Concomitant]
     Indication: HEPATITIS C
     Route: 058
     Dates: start: 20120218
  3. PEGASYS [Concomitant]
     Route: 058
     Dates: start: 20120517
  4. RIBAVIRIN [Concomitant]
     Indication: HEPATITIS C
     Route: 048
     Dates: start: 20120218, end: 20120517
  5. RIBAVIRIN [Concomitant]
     Route: 048
     Dates: start: 20120606
  6. MIRALAX [Concomitant]
  7. COLACE [Concomitant]
  8. HTN MEDICATIONS [Concomitant]
     Indication: HYPERTENSION
  9. NORVASC [Concomitant]
     Route: 048
  10. CELLCEPT [Concomitant]
     Route: 048
  11. HCTZ [Concomitant]
     Route: 048
  12. AMBIEN [Concomitant]
     Route: 048
  13. FERROUS SULPHATE [Concomitant]
  14. VITAMIN D [Concomitant]
     Route: 048
  15. ACIPHEX [Concomitant]
     Route: 048
  16. VASOTEC [Concomitant]
     Route: 048
  17. VALTREX [Concomitant]

REACTIONS (8)
  - Anaemia [Not Recovered/Not Resolved]
  - Headache [Not Recovered/Not Resolved]
  - Oropharyngeal pain [Not Recovered/Not Resolved]
  - Dry mouth [Not Recovered/Not Resolved]
  - Fatigue [Not Recovered/Not Resolved]
  - Swelling face [Not Recovered/Not Resolved]
  - Rash papular [Recovered/Resolved]
  - Pruritus [Not Recovered/Not Resolved]
